FAERS Safety Report 8190885-8 (Version None)
Quarter: 2012Q1

REPORT INFORMATION
  Report Type: 
  Country: None (occurrence: None)
  Receive Date: 20120221
  Receipt Date: 20111121
  Transmission Date: 20120608
  Serious: No
  Sender: FDA-Public Use
  Company Number: 1000025685

PATIENT
  Age: 23 Year
  Sex: Male

DRUGS (2)
  1. DEXILANT (DEXLANSOPRAZOLE) (DEXLANSOPRAZOLE) [Concomitant]
  2. VIIBRYD [Suspect]
     Indication: DEPRESSION
     Dosage: 10 MG (10 MG, 1 IN 1 D), ORAL
     Route: 048
     Dates: start: 20110826

REACTIONS (1)
  - NIGHTMARE [None]
